FAERS Safety Report 8499698-0 (Version None)
Quarter: 2012Q3

REPORT INFORMATION
  Report Type: 
  Country: None (occurrence: None)
  Receive Date: 20120710
  Receipt Date: 20120706
  Transmission Date: 20120928
  Serious: Yes (Hospitalization, Other)
  Sender: FDA-Public Use
  Company Number: US-PFIZER INC-2012162682

PATIENT
  Sex: Female
  Weight: 47.619 kg

DRUGS (5)
  1. XANAX [Suspect]
     Dosage: 3.25 MG, AS NEEDED
     Route: 048
     Dates: start: 20120401
  2. XANAX [Suspect]
     Indication: GENERALISED ANXIETY DISORDER
     Dosage: 6 MG, AS NEEDED
     Route: 048
  3. KLONOPIN [Suspect]
     Indication: GENERALISED ANXIETY DISORDER
     Dosage: UNK
  4. XANAX [Suspect]
     Dosage: UNK
     Route: 048
     Dates: start: 20100101
  5. SEROQUEL [Suspect]
     Indication: GENERALISED ANXIETY DISORDER
     Dosage: UNK

REACTIONS (5)
  - MOVEMENT DISORDER [None]
  - GASTROINTESTINAL DISORDER [None]
  - DRUG INEFFECTIVE [None]
  - ANAPHYLACTIC SHOCK [None]
  - HYPOVITAMINOSIS [None]
